FAERS Safety Report 12535017 (Version 3)
Quarter: 2016Q3

REPORT INFORMATION
  Report Type: Spontaneous
  Country: US (occurrence: US)
  Receive Date: 20160707
  Receipt Date: 20160808
  Transmission Date: 20161109
  Serious: No
  Sender: FDA-Public Use
  Company Number: US-BEH-2015056225

PATIENT
  Sex: Female
  Weight: 46 kg

DRUGS (9)
  1. METHOTREXATE. [Concomitant]
     Active Substance: METHOTREXATE
  2. ACEBUTOLOL [Concomitant]
     Active Substance: ACEBUTOLOL
  3. ACETAMINOPHEN. [Concomitant]
     Active Substance: ACETAMINOPHEN
  4. KEPPRA [Concomitant]
     Active Substance: LEVETIRACETAM
  5. HIZENTRA [Suspect]
     Active Substance: HUMAN IMMUNOGLOBULIN G
     Indication: IMMUNODEFICIENCY COMMON VARIABLE
     Route: 058
  6. XANAX [Concomitant]
     Active Substance: ALPRAZOLAM
  7. MAGNESIUM [Concomitant]
     Active Substance: MAGNESIUM
  8. LEVALBUTEROL. [Concomitant]
     Active Substance: LEVALBUTEROL
  9. EPIPEN [Concomitant]
     Active Substance: EPINEPHRINE

REACTIONS (1)
  - Periodontal disease [Unknown]
